FAERS Safety Report 7069724-4 (Version None)
Quarter: 2010Q4

REPORT INFORMATION
  Report Type: 
  Country: None (occurrence: None)
  Receive Date: 20101028
  Receipt Date: 20100429
  Transmission Date: 20110411
  Serious: No
  Sender: FDA-Public Use
  Company Number: US-WYE-H14927410

PATIENT
  Sex: Male

DRUGS (3)
  1. PROTONIX [Suspect]
     Dosage: UNKNOWN
  2. ZETIA [Suspect]
     Dosage: UNKNOWN
  3. LIPITOR [Suspect]
     Dosage: UNKNOWN

REACTIONS (1)
  - MUSCULOSKELETAL PAIN [None]
